FAERS Safety Report 22589533 (Version 1)
Quarter: 2023Q2

REPORT INFORMATION
  Report Type: Spontaneous
  Country: CA (occurrence: CA)
  Receive Date: 20230612
  Receipt Date: 20230612
  Transmission Date: 20230721
  Serious: Yes (Disabling)
  Sender: FDA-Public Use
  Company Number: CA-PFIZER INC-202300215004

PATIENT
  Age: 39 Year
  Sex: Female

DRUGS (2)
  1. TRASTUZUMAB [Suspect]
     Active Substance: TRASTUZUMAB
     Indication: HER2 positive breast cancer
     Dosage: 483.0 MG, EVERY 3 WEEKS
     Route: 042
  2. TRASTUZUMAB [Suspect]
     Active Substance: TRASTUZUMAB
     Indication: Breast cancer

REACTIONS (5)
  - Off label use [Unknown]
  - Fatigue [Unknown]
  - Malaise [Unknown]
  - Toxicity to various agents [Unknown]
  - Weight decreased [Unknown]
